FAERS Safety Report 10025849 (Version 1)
Quarter: 2014Q1

REPORT INFORMATION
  Report Type: Spontaneous
  Country: US (occurrence: US)
  Receive Date: 20140320
  Receipt Date: 20140320
  Transmission Date: 20141002
  Serious: Yes (Death)
  Sender: FDA-Public Use
  Company Number: US-B.I. PHARMACEUTICALS,INC./RIDGEFIELD-2014-BI-11999BP

PATIENT
  Sex: Male

DRUGS (9)
  1. SPIRIVA [Suspect]
     Indication: CHRONIC OBSTRUCTIVE PULMONARY DISEASE
     Route: 055
     Dates: end: 201402
  2. ATIVAN [Concomitant]
     Route: 048
  3. EFFEXOR XR [Concomitant]
     Route: 048
  4. ACTOS [Concomitant]
     Indication: TYPE 2 DIABETES MELLITUS
     Route: 048
  5. GLUCOPHAGE [Concomitant]
     Indication: TYPE 2 DIABETES MELLITUS
     Route: 048
  6. NAPROSYN [Concomitant]
     Route: 048
  7. NORCO [Concomitant]
     Route: 048
  8. PRILOSEC [Concomitant]
     Route: 048
  9. VYTORIN [Concomitant]
     Route: 048

REACTIONS (1)
  - Death [Fatal]
